FAERS Safety Report 24905200 (Version 3)
Quarter: 2025Q3

REPORT INFORMATION
  Report Type: Report from Study
  Country: US (occurrence: US)
  Receive Date: 20250130
  Receipt Date: 20250810
  Transmission Date: 20251020
  Serious: Yes (Other)
  Sender: ALEXION PHARMACEUTICALS
  Company Number: US-AstraZeneca-CH-00790185A

PATIENT
  Age: 69 Year
  Sex: Female
  Weight: 72.562 kg

DRUGS (1)
  1. OSIMERTINIB [Suspect]
     Active Substance: OSIMERTINIB
     Dosage: 80 MILLIGRAM, QD
     Dates: start: 20250102

REACTIONS (19)
  - Dyspepsia [Not Recovered/Not Resolved]
  - Nausea [Not Recovered/Not Resolved]
  - Vision blurred [Unknown]
  - Stomatitis [Recovered/Resolved]
  - Decreased appetite [Not Recovered/Not Resolved]
  - Fatigue [Not Recovered/Not Resolved]
  - Rash [Unknown]
  - Vomiting [Unknown]
  - Psoriasis [Unknown]
  - Pruritus [Unknown]
  - Moisture-associated skin damage [Unknown]
  - Dry skin [Unknown]
  - Urinary tract infection [Unknown]
  - Red blood cell count decreased [Unknown]
  - Haemoglobin decreased [Unknown]
  - Haematocrit decreased [Unknown]
  - Mean platelet volume increased [Unknown]
  - Blood glucose increased [Unknown]
  - Blood chloride increased [Unknown]
